FAERS Safety Report 24385949 (Version 6)
Quarter: 2025Q2

REPORT INFORMATION
  Report Type: Other
  Country: US (occurrence: US)
  Receive Date: 20241001
  Receipt Date: 20250429
  Transmission Date: 20250716
  Serious: Yes (Hospitalization, Other)
  Sender: TRAVERE THERAPEUTICS
  Company Number: US-TRAVERE-2024TVT00970

PATIENT
  Age: 68 Year
  Sex: Female

DRUGS (32)
  1. FILSPARI [Suspect]
     Active Substance: SPARSENTAN
     Indication: IgA nephropathy
     Route: 048
     Dates: start: 20240907, end: 20240911
  2. FILSPARI [Suspect]
     Active Substance: SPARSENTAN
     Route: 048
     Dates: start: 20240916, end: 20240920
  3. SODIUM CHLORIDE [Concomitant]
     Active Substance: SODIUM CHLORIDE
  4. PLAQUENIL [Concomitant]
     Active Substance: HYDROXYCHLOROQUINE SULFATE
  5. ALDACTONE [Concomitant]
     Active Substance: SPIRONOLACTONE
  6. PROVENTIL HFA [Concomitant]
     Active Substance: ALBUTEROL SULFATE
  7. VENTOLIN HFA [Concomitant]
     Active Substance: ALBUTEROL SULFATE
  8. DUONEB [Concomitant]
     Active Substance: ALBUTEROL SULFATE\IPRATROPIUM BROMIDE
  9. PROTONIX [Concomitant]
     Active Substance: PANTOPRAZOLE SODIUM
  10. DESYREL [Concomitant]
     Active Substance: TRAZODONE HYDROCHLORIDE
  11. ATARAX [Concomitant]
     Active Substance: HYDROXYZINE HYDROCHLORIDE
  12. DELTASONE [Concomitant]
     Active Substance: PREDNISONE
  13. MICONAZOLE [Concomitant]
     Active Substance: MICONAZOLE
  14. VITAMIN D3 [Concomitant]
     Active Substance: CHOLECALCIFEROL
  15. DEXTROSE [Concomitant]
     Active Substance: DEXTROSE MONOHYDRATE
  16. GLUCAGON [Concomitant]
     Active Substance: GLUCAGON
  17. HEPARIN [Concomitant]
     Active Substance: HEPARIN SODIUM
  18. ZOFRAN [Concomitant]
     Active Substance: ONDANSETRON HYDROCHLORIDE
  19. TYLENOL [Concomitant]
     Active Substance: ACETAMINOPHEN
  20. INSULIN GLARGINE [Concomitant]
     Active Substance: INSULIN GLARGINE
  21. ADMELOG [Concomitant]
     Active Substance: INSULIN LISPRO
  22. ZYRTEC [Concomitant]
     Active Substance: CETIRIZINE HYDROCHLORIDE
  23. TORSEMIDE [Concomitant]
     Active Substance: TORSEMIDE
  24. SPIRONOLACTONE [Concomitant]
     Active Substance: SPIRONOLACTONE
  25. PREDNISOLONE [Concomitant]
     Active Substance: PREDNISOLONE
  26. TARPEYO [Concomitant]
     Active Substance: BUDESONIDE
  27. JARDIANCE [Concomitant]
     Active Substance: EMPAGLIFLOZIN
  28. SANCTURA [Concomitant]
     Active Substance: TROSPIUM CHLORIDE
  29. DILAUDID [Concomitant]
     Active Substance: HYDROMORPHONE HYDROCHLORIDE
  30. ROCEPHIN [Concomitant]
     Active Substance: CEFTRIAXONE SODIUM
  31. REFRESH CELLUVISC [Concomitant]
     Active Substance: CARBOXYMETHYLCELLULOSE SODIUM
  32. DEMADEX [Concomitant]
     Active Substance: TORSEMIDE

REACTIONS (10)
  - Blood creatinine increased [Recovering/Resolving]
  - Hospitalisation [Unknown]
  - Pulmonary congestion [Unknown]
  - Blood urea increased [Recovering/Resolving]
  - Liver function test increased [Recovering/Resolving]
  - Abdominal pain upper [Unknown]
  - Autoimmune disorder [Unknown]
  - Aspartate aminotransferase abnormal [Unknown]
  - Alanine aminotransferase abnormal [Unknown]
  - Urinary tract infection bacterial [None]
